FAERS Safety Report 4343220-7 (Version None)
Quarter: 2004Q1

REPORT INFORMATION
  Report Type: 
  Country: None (occurrence: None)
  Receive Date: 20040325
  Receipt Date: 20030818
  Transmission Date: 20041129
  Serious: No
  Sender: FDA-Public Use
  Company Number: USA030844531

PATIENT
  Age: 66 Year
  Sex: Male
  Weight: 95 kg

DRUGS (11)
  1. FORTEO [Suspect]
     Indication: OSTEOPOROSIS
     Dosage: 20 UG/DAY
     Dates: start: 20030501
  2. PREDNISONE [Concomitant]
  3. POTASSIUM [Concomitant]
  4. SYNTHROID [Concomitant]
  5. LISINOPRIL [Concomitant]
  6. COUMADIN [Concomitant]
  7. OXYCONTIN [Concomitant]
  8. OXYGEN [Concomitant]
  9. ALBUTEROL [Concomitant]
  10. KLONOPIN [Concomitant]
  11. LASIX [Concomitant]

REACTIONS (3)
  - FLUID RETENTION [None]
  - OEDEMA PERIPHERAL [None]
  - WEIGHT INCREASED [None]
